FAERS Safety Report 8553286-6 (Version None)
Quarter: 2012Q3

REPORT INFORMATION
  Report Type: 
  Country: None (occurrence: None)
  Receive Date: 20120731
  Receipt Date: 20120723
  Transmission Date: 20120928
  Serious: Yes (Other)
  Sender: FDA-Public Use
  Company Number: JP-VERTEX PHARMACEUTICALS INC.-AE-2012-007732

PATIENT
  Age: 59 Year
  Sex: Male

DRUGS (7)
  1. TELAVIC (TELAPREVIR) [Suspect]
     Route: 048
     Dates: start: 20120613, end: 20120626
  2. REBETOL [Concomitant]
     Route: 048
     Dates: start: 20120530
  3. REBETOL [Concomitant]
     Indication: HEPATITIS C
     Route: 048
     Dates: start: 20120405, end: 20120508
  4. REBETOL [Concomitant]
     Route: 048
     Dates: start: 20120509, end: 20120529
  5. TAMSULOSIN HCL [Concomitant]
     Route: 048
     Dates: start: 20120509
  6. TELAVIC (TELAPREVIR) [Suspect]
     Indication: HEPATITIS C
     Route: 048
     Dates: start: 20120405, end: 20120612
  7. PEGINTERFERON ALFA-2B [Concomitant]
     Route: 058
     Dates: start: 20120405

REACTIONS (1)
  - CONVULSION [None]
